FAERS Safety Report 18685178 (Version 1)
Quarter: 2020Q4

REPORT INFORMATION
  Report Type: Spontaneous
  Country: US (occurrence: US)
  Receive Date: 20201230
  Receipt Date: 20201230
  Transmission Date: 20210114
  Serious: Yes (Hospitalization)
  Sender: FDA-Public Use
  Company Number: US-SAOL THERAPEUTICS-2020SAO00528

PATIENT
  Sex: Female
  Weight: 38.7 kg

DRUGS (1)
  1. LIORESAL [Suspect]
     Active Substance: BACLOFEN
     Indication: MUSCLE SPASMS
     Dosage: 1248.8 ?G, \DAY
     Route: 037

REACTIONS (1)
  - Hospitalisation [Not Recovered/Not Resolved]
